FAERS Safety Report 8190207-2 (Version None)
Quarter: 2012Q1

REPORT INFORMATION
  Report Type: 
  Country: None (occurrence: None)
  Receive Date: 20120307
  Receipt Date: 20120305
  Transmission Date: 20120608
  Serious: No
  Sender: FDA-Public Use
  Company Number: US-PFIZER INC-2012011529

PATIENT
  Sex: Male
  Weight: 87 kg

DRUGS (5)
  1. PREDNISONE [Concomitant]
     Dosage: UNK
  2. MULTI-VITAMINS [Concomitant]
     Dosage: UNK
  3. CHANTIX [Suspect]
     Indication: SMOKING CESSATION THERAPY
     Dosage: 0.5 MG, UNK
     Route: 048
     Dates: start: 20120107, end: 20120101
  4. CHANTIX [Suspect]
     Dosage: 1 MG, 2X/DAY
     Route: 048
     Dates: start: 20120101
  5. CALCIUM [Concomitant]
     Dosage: UNK

REACTIONS (3)
  - BREATH ODOUR [None]
  - DYSGEUSIA [None]
  - PAROSMIA [None]
